FAERS Safety Report 21091872 (Version 1)
Quarter: 2022Q3

REPORT INFORMATION
  Report Type: Spontaneous
  Country: DE (occurrence: DE)
  Receive Date: 20220717
  Receipt Date: 20220717
  Transmission Date: 20221027
  Serious: Yes (Other)
  Sender: FDA-Public Use
  Company Number: DE-NOVARTISPH-NVSC2022DE157575

PATIENT
  Age: 39 Year
  Sex: Female

DRUGS (2)
  1. CLINDAMYCIN [Suspect]
     Active Substance: CLINDAMYCIN
     Indication: Dental care
     Dosage: 600 MG (0.5  DAY, MID APRIL 2022- MID MAY 2022)
     Route: 048
     Dates: start: 202204, end: 202205
  2. IBUPROFEN [Suspect]
     Active Substance: IBUPROFEN
     Indication: Dental care
     Dosage: UNK (MID APRIL 2022- MID MAY 2022 DOSE: 4)
     Route: 048
     Dates: start: 202204, end: 202205

REACTIONS (2)
  - Abortion early [Unknown]
  - Exposure during pregnancy [Unknown]
